FAERS Safety Report 9979557 (Version 1)
Quarter: 2014Q1

REPORT INFORMATION
  Report Type: Report from Study
  Country: US (occurrence: US)
  Receive Date: 20140306
  Receipt Date: 20140306
  Transmission Date: 20141002
  Serious: No
  Sender: FDA-Public Use
  Company Number: US-ABBVIE-13P-163-1168219-00

PATIENT
  Age: 58 Year
  Sex: Female
  Weight: 68.1 kg

DRUGS (12)
  1. HUMIRA [Suspect]
     Indication: RHEUMATOID ARTHRITIS
     Route: 058
     Dates: start: 201306, end: 201307
  2. METHOTREXATE [Concomitant]
     Indication: RHEUMATOID ARTHRITIS
  3. PREDNISONE [Concomitant]
     Indication: RHEUMATOID ARTHRITIS
  4. SPIRONOLACTONE [Concomitant]
     Indication: HYPERTENSION
  5. CLARITIN [Concomitant]
     Indication: HYPERSENSITIVITY
  6. NEURONTIN [Concomitant]
     Indication: FIBROMYALGIA
  7. LUVOX [Concomitant]
     Indication: ANXIETY
  8. PREVACID [Concomitant]
     Indication: GASTROOESOPHAGEAL REFLUX DISEASE
  9. MAGNESIUM [Concomitant]
     Indication: VITAMIN SUPPLEMENTATION
  10. VITAMIN B12 [Concomitant]
     Indication: VITAMIN SUPPLEMENTATION
  11. IRON [Concomitant]
     Indication: VITAMIN SUPPLEMENTATION
  12. OMEGA 3 [Concomitant]
     Indication: VITAMIN SUPPLEMENTATION

REACTIONS (2)
  - Hypoaesthesia [Recovered/Resolved]
  - Paraesthesia [Recovered/Resolved]
